FAERS Safety Report 11198977 (Version 1)
Quarter: 2015Q2

REPORT INFORMATION
  Report Type: Spontaneous
  Country: US (occurrence: None)
  Receive Date: 20150608
  Receipt Date: 20150608
  Transmission Date: 20150821
  Serious: No
  Sender: FDA-Public Use
  Company Number: 2015TUS003227

PATIENT
  Sex: Male

DRUGS (7)
  1. ESOMEPRAZOLE [Concomitant]
     Active Substance: ESOMEPRAZOLE
  2. FISH OIL [Concomitant]
     Active Substance: FISH OIL
  3. BRINTELLIX [Suspect]
     Active Substance: VORTIOXETINE HYDROBROMIDE
     Indication: DEPRESSION
     Route: 048
  4. ATORVASTATIN [Concomitant]
     Active Substance: ATORVASTATIN
  5. LAMOTRIGINE. [Concomitant]
     Active Substance: LAMOTRIGINE
  6. PROSTATE SUPPLEMENT (ALL OTHER THERAPEUTIC PRODUCTS) [Concomitant]
  7. ASPIRIN (ACETYLSALICYLIC ACID) [Concomitant]
     Active Substance: ASPIRIN

REACTIONS (6)
  - Nausea [None]
  - Condition aggravated [None]
  - Abdominal discomfort [None]
  - Constipation [None]
  - Vomiting [None]
  - Gastrooesophageal reflux disease [None]
